FAERS Safety Report 7429043-0 (Version None)
Quarter: 2011Q2

REPORT INFORMATION
  Report Type: 
  Country: None (occurrence: None)
  Receive Date: 20110421
  Receipt Date: 20110411
  Transmission Date: 20111010
  Serious: Yes (Life-Threatening)
  Sender: FDA-Public Use
  Company Number: ID-SANOFI-AVENTIS-2011SA019423

PATIENT
  Age: 68 Year
  Sex: Female
  Weight: 47 kg

DRUGS (4)
  1. DOCETAXEL [Suspect]
     Route: 042
     Dates: start: 20110108, end: 20110108
  2. CARBOPLATIN [Suspect]
     Indication: BREAST CANCER
     Route: 042
     Dates: start: 20101214, end: 20101214
  3. DOCETAXEL [Suspect]
     Indication: BREAST CANCER
     Route: 042
     Dates: start: 20101023, end: 20101023
  4. CARBOPLATIN [Suspect]
     Route: 042
     Dates: start: 20110108, end: 20110108

REACTIONS (1)
  - HYPOKALAEMIA [None]
